FAERS Safety Report 8458330-2 (Version None)
Quarter: 2012Q2

REPORT INFORMATION
  Report Type: 
  Country: None (occurrence: None)
  Receive Date: 20120615
  Receipt Date: 20120605
  Transmission Date: 20120825
  Serious: No
  Sender: FDA-Public Use
  Company Number: 2012SP030686

PATIENT

DRUGS (1)
  1. KEIMAX (CEFTIBUTEN /01166201/) [Suspect]
     Indication: PRODUCT USED FOR UNKNOWN INDICATION
     Dates: end: 20120604

REACTIONS (1)
  - RASH PRURITIC [None]
